FAERS Safety Report 5025063-4 (Version None)
Quarter: 2006Q2

REPORT INFORMATION
  Report Type: 
  Country: None (occurrence: None)
  Receive Date: 20060426
  Receipt Date: 20060118
  Transmission Date: 20061013
  Serious: Yes (Other)
  Sender: FDA-Public Use
  Company Number: 2006010858

PATIENT
  Age: 54 Year
  Sex: Female

DRUGS (23)
  1. LYRICA [Suspect]
     Indication: FIBROMYALGIA
     Dosage: 100 MG (50 MG,2 IN 1 D),ORAL
     Route: 048
     Dates: start: 20050101
  2. NEXIUM [Concomitant]
  3. LIPITOR [Concomitant]
  4. LOPRESSOR [Concomitant]
  5. HYDROCHLOROTHIAZIDE WITH TRIAMTERENE (HYDROCHLOROTHIAZIDE, TRIAMTERENE [Concomitant]
  6. POTASSIUM CHLORIDE [Concomitant]
  7. DEXCHLORAMINE (DEXCHLORPHENIRAMINE MALEATE) [Concomitant]
  8. FLEXERIL [Concomitant]
  9. XANAX [Concomitant]
  10. CONCERTA [Concomitant]
  11. TRAZODONE HCL [Concomitant]
  12. LUNESTA [Concomitant]
  13. ZELNORM [Concomitant]
  14. SINGULAIR ^DIECKMANN^ (MONTELUKAST SODIUM) [Concomitant]
  15. URISPAS [Concomitant]
  16. SENNA-GEN (SENNA) [Concomitant]
  17. ZYRTEC [Concomitant]
  18. CITALOPRAM HYDROBROMIDE [Concomitant]
  19. PROMETHAZINE [Concomitant]
  20. METHADOSE (METHADONE HYDROCHLORIDE) [Concomitant]
  21. ESTRADIOL [Concomitant]
  22. ALL OTHER THERAPEUTIC PRODUCTS (ALL OTHER THERAPEUTIC PRODUCTS) [Concomitant]
  23. TEARS NATURALE (DEXTRAN 70, HYPROMELLOSE) [Concomitant]

REACTIONS (11)
  - BLINDNESS [None]
  - DIARRHOEA [None]
  - DIZZINESS [None]
  - DYSGEUSIA [None]
  - ENERGY INCREASED [None]
  - INSOMNIA [None]
  - MALAISE [None]
  - MEMORY IMPAIRMENT [None]
  - SOMNOLENCE [None]
  - VISION BLURRED [None]
  - WEIGHT INCREASED [None]
